FAERS Safety Report 14000692 (Version 2)
Quarter: 2017Q3

REPORT INFORMATION
  Report Type: Spontaneous
  Country: US (occurrence: US)
  Receive Date: 20170922
  Receipt Date: 20170928
  Transmission Date: 20171128
  Serious: Yes (Life-Threatening, Other)
  Sender: FDA-Public Use
  Company Number: US-PFIZER INC-2017410932

PATIENT
  Age: 72 Year
  Sex: Female

DRUGS (5)
  1. GLUCOSE [Suspect]
     Active Substance: DEXTROSE
     Indication: DEHYDRATION
     Dosage: UNK
     Route: 042
  2. SODIUM CHLORIDE. [Concomitant]
     Active Substance: SODIUM CHLORIDE
     Indication: DEHYDRATION
     Dosage: UNK
     Route: 042
  3. ALBUTEROL /00139501/ [Suspect]
     Active Substance: ALBUTEROL
     Indication: ASTHMA
     Dosage: UNK, AS NEEDED
     Route: 055
  4. GLUCOSE [Suspect]
     Active Substance: DEXTROSE
     Indication: ASTHENIA
  5. SODIUM CHLORIDE. [Concomitant]
     Active Substance: SODIUM CHLORIDE
     Indication: ASTHENIA

REACTIONS (2)
  - Hypokalaemia [Unknown]
  - Torsade de pointes [Recovered/Resolved]
